FAERS Safety Report 16804619 (Version 1)
Quarter: 2019Q3

REPORT INFORMATION
  Report Type: Spontaneous
  Country: US (occurrence: US)
  Receive Date: 20190913
  Receipt Date: 20190913
  Transmission Date: 20191005
  Serious: Yes (Hospitalization)
  Sender: FDA-Public Use
  Company Number: US-ASTRAZENECA-2019SF29163

PATIENT
  Sex: Female
  Weight: 88.5 kg

DRUGS (7)
  1. METFORMIN [Concomitant]
     Active Substance: METFORMIN HYDROCHLORIDE
     Dosage: 1000 MG TWICE A DAY
     Route: 065
  2. BYDUREON [Suspect]
     Active Substance: EXENATIDE
     Route: 058
  3. BYDUREON [Suspect]
     Active Substance: EXENATIDE
     Route: 058
  4. BYDUREON [Suspect]
     Active Substance: EXENATIDE
     Route: 058
     Dates: start: 2015
  5. METFORMIN [Concomitant]
     Active Substance: METFORMIN HYDROCHLORIDE
     Dosage: EXTENDED RELEASE TWO 500 MG TWICE A DAY
     Route: 065
  6. BYDUREON [Suspect]
     Active Substance: EXENATIDE
     Route: 058
     Dates: start: 2015
  7. BYETTA [Suspect]
     Active Substance: EXENATIDE
     Route: 065

REACTIONS (3)
  - Arthritis [Unknown]
  - Diarrhoea [Unknown]
  - Spinal disorder [Unknown]
